FAERS Safety Report 12420754 (Version 2)
Quarter: 2016Q2

REPORT INFORMATION
  Report Type: Spontaneous
  Country: JP (occurrence: JP)
  Receive Date: 20160531
  Receipt Date: 20160616
  Transmission Date: 20160815
  Serious: Yes (Death, Hospitalization, Other)
  Sender: FDA-Public Use
  Company Number: JP-CELGENEUS-JPN-2014102993

PATIENT
  Age: 73 Year
  Sex: Male

DRUGS (6)
  1. LENADEX [Suspect]
     Active Substance: DEXAMETHASONE ACETATE
     Indication: PLASMA CELL MYELOMA
     Route: 048
     Dates: start: 20130422, end: 20130521
  2. PLATELETS [Concomitant]
     Active Substance: HUMAN PLATELET, ALLOGENIC
     Indication: PRODUCT USED FOR UNKNOWN INDICATION
     Route: 065
     Dates: start: 201305, end: 201305
  3. CONCENTRATED RED CELLS [Concomitant]
     Active Substance: HUMAN RED BLOOD CELL
     Route: 065
     Dates: start: 201301, end: 201301
  4. CONCENTRATED RED CELLS [Concomitant]
     Active Substance: HUMAN RED BLOOD CELL
     Indication: PRODUCT USED FOR UNKNOWN INDICATION
     Route: 065
     Dates: start: 201212, end: 201212
  5. CONCENTRATED RED CELLS [Concomitant]
     Active Substance: HUMAN RED BLOOD CELL
     Route: 065
     Dates: start: 201306, end: 201306
  6. REVLIMID [Suspect]
     Active Substance: LENALIDOMIDE
     Indication: PLASMA CELL MYELOMA
     Route: 048
     Dates: start: 20130422, end: 20130521

REACTIONS (5)
  - Papillary thyroid cancer [Not Recovered/Not Resolved]
  - Septic shock [Unknown]
  - Medullary thyroid cancer [Not Recovered/Not Resolved]
  - Atypical pneumonia [Fatal]
  - Cholangiocarcinoma [Not Recovered/Not Resolved]

NARRATIVE: CASE EVENT DATE: 201305
